FAERS Safety Report 6831274-5 (Version None)
Quarter: 2010Q3

REPORT INFORMATION
  Report Type: 
  Country: None (occurrence: None)
  Receive Date: 20100712
  Receipt Date: 20100630
  Transmission Date: 20110219
  Serious: Yes (Life-Threatening, Hospitalization)
  Sender: FDA-Public Use
  Company Number: ES-PFIZER INC-2010082113

PATIENT
  Age: 79 Year
  Sex: Male

DRUGS (1)
  1. CHAMPIX [Suspect]
     Indication: SMOKING CESSATION THERAPY
     Dosage: 0.5 MG, 1X/DAY
     Route: 048
     Dates: start: 20100430, end: 20100506

REACTIONS (4)
  - ACUTE MYOCARDIAL INFARCTION [None]
  - DYSPHAGIA [None]
  - PALATAL OEDEMA [None]
  - PERITONSILLAR ABSCESS [None]
